FAERS Safety Report 5065816-X (Version None)
Quarter: 2006Q3

REPORT INFORMATION
  Report Type: 
  Country: None (occurrence: None)
  Receive Date: 20060725
  Receipt Date: 20060713
  Transmission Date: 20061208
  Serious: Yes (Hospitalization)
  Sender: FDA-Public Use
  Company Number: HQWYE888513JUL06

PATIENT
  Age: 84 Year
  Sex: Female

DRUGS (5)
  1. CORDARONE [Suspect]
     Dosage: 200  MG 1X PER 1 DAY
     Route: 048
  2. ALLOPURINOL [Suspect]
     Dosage: 200 MG 1X PER 1 DAY
     Route: 048
     Dates: end: 20060404
  3. COUMADIN [Suspect]
     Dosage: 2 MG 1X PER 1 DAY
     Route: 048
     Dates: start: 20060115, end: 20060404
  4. FENOFIBRATE [Suspect]
     Dosage: 160 MG 1X PER 1 DAY
     Route: 048
     Dates: end: 20060404
  5. FLECAINIDE ACETATE [Concomitant]

REACTIONS (11)
  - BRAIN HERNIATION [None]
  - CEREBRAL HAEMATOMA [None]
  - CEREBRAL HAEMORRHAGE [None]
  - COMA [None]
  - CONDITION AGGRAVATED [None]
  - DRUG INTERACTION [None]
  - ECCHYMOSIS [None]
  - FALL [None]
  - NERVOUS SYSTEM DISORDER [None]
  - OEDEMA [None]
  - SPEECH DISORDER [None]
